FAERS Safety Report 9995690 (Version 1)
Quarter: 2014Q1

REPORT INFORMATION
  Report Type: Spontaneous
  Country: US (occurrence: US)
  Receive Date: 20140311
  Receipt Date: 20140311
  Transmission Date: 20141002
  Serious: No
  Sender: FDA-Public Use
  Company Number: US-GALDERMA-US13003748

PATIENT
  Age: 76 Year
  Sex: Female

DRUGS (6)
  1. TRI-LUMA CREAM (FLUOCINOLONE ACETONIDE 0.01%, HYDROQUINONE 4%, TRETINO [Suspect]
     Indication: LENTIGO
     Route: 061
     Dates: start: 20131102, end: 20131111
  2. TRI-LUMA CREAM (FLUOCINOLONE ACETONIDE 0.01%, HYDROQUINONE 4%, TRETINO [Suspect]
     Indication: PIGMENTATION DISORDER
  3. OIL OF OLAY CLEANSER [Concomitant]
     Indication: THERAPEUTIC SKIN CARE TOPICAL
     Route: 061
  4. OIL OF OLAY MOISTURIZER [Concomitant]
     Indication: DRY SKIN PROPHYLAXIS
     Route: 061
  5. ESTEE LAUDER MAKEUP [Concomitant]
     Route: 061
  6. QVAR INHALER [Concomitant]
     Dates: start: 2008

REACTIONS (3)
  - Urticaria [Recovered/Resolved]
  - Erythema [Recovered/Resolved]
  - Skin burning sensation [Recovered/Resolved]
